FAERS Safety Report 5603163-5 (Version None)
Quarter: 2008Q1

REPORT INFORMATION
  Report Type: 
  Country: None (occurrence: None)
  Receive Date: 20080125
  Receipt Date: 20080115
  Transmission Date: 20080703
  Serious: Yes (Other)
  Sender: FDA-Public Use
  Company Number: JP-PFIZER INC-2008000352

PATIENT
  Sex: Female
  Weight: 54 kg

DRUGS (15)
  1. ZITHROMAX [Suspect]
     Indication: PRODUCTIVE COUGH
     Route: 048
     Dates: start: 20071219, end: 20071221
  2. ZITHROMAX [Suspect]
     Indication: PHARYNGOLARYNGEAL PAIN
  3. ZITHROMAX [Suspect]
     Indication: PHARYNGITIS
  4. MUCODYNE [Suspect]
     Indication: PHARYNGITIS
     Route: 048
     Dates: start: 20071219, end: 20071225
  5. MUCOSTA [Suspect]
     Indication: GASTROENTERITIS
     Route: 048
     Dates: start: 20071222, end: 20071227
  6. BIO THREE [Suspect]
     Indication: GASTROENTERITIS
     Route: 048
     Dates: start: 20071222, end: 20071227
  7. THIATON [Suspect]
     Indication: GASTROENTERITIS
     Route: 048
     Dates: start: 20071222, end: 20071225
  8. CANDESARTAN CILEXETIL [Concomitant]
     Route: 048
  9. SIMVASTATIN [Concomitant]
     Route: 048
  10. GASTER [Concomitant]
     Route: 048
  11. ISALON [Concomitant]
     Route: 048
     Dates: start: 20071219, end: 20071225
  12. LACTEC [Concomitant]
     Route: 042
     Dates: start: 20071222
  13. DRUG, UNSPECIFIED [Concomitant]
     Route: 042
     Dates: start: 20071222
  14. BRUFEN [Concomitant]
     Route: 048
     Dates: start: 20071219, end: 20071225
  15. HUSCODE [Concomitant]
     Route: 048
     Dates: start: 20071219, end: 20071225

REACTIONS (1)
  - PURPURA [None]
